FAERS Safety Report 5257243-7 (Version None)
Quarter: 2007Q1

REPORT INFORMATION
  Report Type: 
  Country: None (occurrence: None)
  Receive Date: 20070307
  Receipt Date: 20070302
  Transmission Date: 20070707
  Serious: Yes (Life-Threatening, Hospitalization, Disabling)
  Sender: FDA-Public Use
  Company Number: GB-JNJFOC-20070300688

PATIENT
  Age: 69 Year
  Sex: Male
  Weight: 86.9 kg

DRUGS (5)
  1. REMICADE [Suspect]
     Indication: ANKYLOSING SPONDYLITIS
     Route: 042
  2. FOLIC ACID [Concomitant]
     Route: 048
  3. HYDROXYCHLOROQUINE SULFATE [Concomitant]
     Indication: ANKYLOSING SPONDYLITIS
     Route: 048
  4. METHOTREXATE [Concomitant]
     Indication: ANKYLOSING SPONDYLITIS
     Route: 048
  5. SULFASALAZINE [Concomitant]
     Indication: ANKYLOSING SPONDYLITIS
     Route: 048

REACTIONS (1)
  - MULTIPLE MYELOMA [None]
